FAERS Safety Report 5140722-0 (Version None)
Quarter: 2006Q4

REPORT INFORMATION
  Report Type: 
  Country: None (occurrence: None)
  Receive Date: 20061025
  Receipt Date: 20061018
  Transmission Date: 20070319
  Serious: Yes (Other)
  Sender: FDA-Public Use
  Company Number: 2006-0045

PATIENT
  Age: 60 Year
  Sex: Female

DRUGS (1)
  1. FARESTON [Suspect]
     Dosage: 40 MG
     Route: 048
     Dates: start: 20051001, end: 20061016

REACTIONS (2)
  - BLISTER [None]
  - PAIN [None]
